FAERS Safety Report 16810465 (Version 1)
Quarter: 2019Q3

REPORT INFORMATION
  Report Type: Report from Study
  Country: US (occurrence: US)
  Receive Date: 20190916
  Receipt Date: 20190916
  Transmission Date: 20191005
  Serious: Yes (Life-Threatening, Other)
  Sender: FDA-Public Use
  Company Number: US-RECRO GAINESVILLE LLC-REPH-2019-000185

PATIENT
  Age: 52 Year
  Sex: Female

DRUGS (1)
  1. VERAPAMIL HYDROCHLORIDE SUSTAINED RELEASE [Suspect]
     Active Substance: VERAPAMIL HYDROCHLORIDE
     Dosage: APPROXIMATELY 30, 120 MG TABLETS, ONE TIME DOSE
     Route: 048

REACTIONS (7)
  - Overdose [Recovered/Resolved]
  - Coma [Recovered/Resolved]
  - Pulse abnormal [Recovered/Resolved]
  - Sinus bradycardia [Recovered/Resolved]
  - Blood pressure immeasurable [Recovered/Resolved]
  - Hypokalaemia [Recovered/Resolved]
  - Atrioventricular block complete [Recovered/Resolved]
